FAERS Safety Report 14289300 (Version 4)
Quarter: 2021Q3

REPORT INFORMATION
  Report Type: Spontaneous
  Country: US (occurrence: US)
  Receive Date: 20171214
  Receipt Date: 20210831
  Transmission Date: 20211014
  Serious: No
  Sender: FDA-Public Use
  Company Number: US-PFIZER INC-2017534543

PATIENT
  Age: 64 Year
  Sex: Female
  Weight: 61 kg

DRUGS (6)
  1. PREMPRO [Suspect]
     Active Substance: ESTROGENS, CONJUGATED\MEDROXYPROGESTERONE ACETATE
     Indication: MENOPAUSE
     Dosage: 1 DF, 1X/DAY
     Route: 048
     Dates: start: 2000
  2. BUSPAR [Concomitant]
     Active Substance: BUSPIRONE HYDROCHLORIDE
     Indication: ANXIETY
     Dosage: 15 MG, 2X/DAY
     Route: 048
     Dates: start: 2000
  3. LEXAPRO [Concomitant]
     Active Substance: ESCITALOPRAM OXALATE
     Indication: ANXIETY
  4. LEXAPRO [Concomitant]
     Active Substance: ESCITALOPRAM OXALATE
     Indication: DEPRESSION
     Dosage: 20MG TABLET, TAKE ONE AND A HALF TABLETS BY MOUTH DAILY
     Route: 048
     Dates: start: 2000
  5. XANAX [Concomitant]
     Active Substance: ALPRAZOLAM
     Indication: ANXIETY
     Dosage: 0.5MG ONE TABLET THREE TIMES A DAY AS NEEDED
     Dates: start: 2000
  6. LAMICTAL [Concomitant]
     Active Substance: LAMOTRIGINE
     Indication: DEPRESSION
     Dosage: 125 MG, 2X/DAY
     Route: 048
     Dates: start: 2012

REACTIONS (4)
  - Dizziness [Recovering/Resolving]
  - Gait disturbance [Unknown]
  - Pain [Not Recovered/Not Resolved]
  - Product dose omission issue [Unknown]

NARRATIVE: CASE EVENT DATE: 20171206
